FAERS Safety Report 13590661 (Version 1)
Quarter: 2017Q2

REPORT INFORMATION
  Report Type: Spontaneous
  Country: US (occurrence: US)
  Receive Date: 20170529
  Receipt Date: 20170529
  Transmission Date: 20170830
  Serious: No
  Sender: FDA-Public Use
  Company Number: US-WEST-WARD PHARMACEUTICALS CORP.-US-H14001-16-02385

PATIENT
  Sex: Female

DRUGS (1)
  1. PREDNISONE. [Suspect]
     Active Substance: PREDNISONE
     Indication: PRODUCT USED FOR UNKNOWN INDICATION
     Route: 065

REACTIONS (6)
  - Gastrooesophageal reflux disease [Recovered/Resolved]
  - Flatulence [Recovered/Resolved]
  - Gastrointestinal pain [Recovered/Resolved]
  - Abdominal pain upper [Recovered/Resolved]
  - Bowel movement irregularity [Recovered/Resolved]
  - Muscle spasms [Recovered/Resolved]
